FAERS Safety Report 26061719 (Version 1)
Quarter: 2025Q4

REPORT INFORMATION
  Report Type: Spontaneous
  Country: CA (occurrence: CA)
  Receive Date: 20251118
  Receipt Date: 20251118
  Transmission Date: 20260118
  Serious: Yes (Other)
  Sender: AUROBINDO
  Company Number: CA-AUROBINDO-AUR-APL-2025-058339

PATIENT
  Age: 38 Year

DRUGS (2)
  1. CEFIXIME [Suspect]
     Active Substance: CEFIXIME
     Indication: Gonorrhoea
     Dosage: 800 MILLIGRAM
  2. AZITHROMYCIN [Suspect]
     Active Substance: AZITHROMYCIN
     Indication: Gonorrhoea
     Dosage: 1 GRAM

REACTIONS (2)
  - Oropharyngeal gonococcal infection [Recovered/Resolved]
  - Treatment failure [Recovered/Resolved]
